FAERS Safety Report 9011797 (Version 1)
Quarter: 2012Q4

REPORT INFORMATION
  Report Type: Spontaneous
  Country: US (occurrence: None)
  Receive Date: 20121228
  Receipt Date: 20121228
  Transmission Date: 20130627
  Serious: Yes (Death, Hospitalization)
  Sender: FDA-Public Use
  Company Number: DKLU1086442

PATIENT
  Age: 8 Month
  Sex: Female

DRUGS (9)
  1. SABRIL (FOR ORAL SOLUTION) (SABRIL) (VIGABATRIN) (500 MG, POWDER FOR ORAL SOLUTION) [Suspect]
     Indication: GRAND MAL CONVULSION
     Route: 048
     Dates: start: 20120926
  2. SABRIL (FOR ORAL SOLUTION) (SABRIL) (VIGABATRIN) (500 MG, POWDER FOR ORAL SOLUTION) [Suspect]
     Indication: EPILEPSY
     Route: 048
     Dates: start: 20120926
  3. SABRIL (FOR ORAL SOLUTION) (SABRIL) (VIGABATRIN) (500 MG, POWDER FOR ORAL SOLUTION) [Suspect]
     Indication: GRAND MAL CONVULSION
     Route: 048
     Dates: start: 20120920, end: 20121219
  4. SABRIL (FOR ORAL SOLUTION) (SABRIL) (VIGABATRIN) (500 MG, POWDER FOR ORAL SOLUTION) [Suspect]
     Indication: EPILEPSY
     Route: 048
     Dates: start: 20120920, end: 20121219
  5. KEPPRA (LEVETIRACETAM) [Concomitant]
  6. TOPAMAX (TOPIRAMATE) [Concomitant]
  7. DEPAKOTE (VALPROATE SEMISODIUM) [Concomitant]
  8. CARNITOR (LEVOCARNITINE) [Concomitant]
  9. DEPACON (VALPROATE SODIUM) [Concomitant]

REACTIONS (5)
  - Convulsion [None]
  - Urinary tract infection [None]
  - Pneumonia [None]
  - Otitis media [None]
  - Rhinorrhoea [None]
